FAERS Safety Report 9462253 (Version 1)
Quarter: 2013Q3

REPORT INFORMATION
  Report Type: Spontaneous
  Country: US (occurrence: US)
  Receive Date: 20130816
  Receipt Date: 20130816
  Transmission Date: 20140515
  Serious: Yes (Hospitalization, Other)
  Sender: FDA-Public Use
  Company Number: US-MUTUAL PHARMACEUTICAL COMPANY, INC.-SPLC20130002

PATIENT
  Sex: Female
  Weight: 97.61 kg

DRUGS (16)
  1. SPIRONOLACTONE [Suspect]
     Indication: POLYCYSTIC OVARIES
     Route: 065
     Dates: start: 201105
  2. SPIRONOLACTONE [Suspect]
     Indication: RECURRING SKIN BOILS
     Route: 065
  3. SPIRONOLACTONE [Suspect]
     Indication: VIRILISM
     Route: 065
     Dates: start: 1990
  4. SPIRONOLACTONE [Suspect]
     Indication: BLOOD TESTOSTERONE INCREASED
  5. ALDACTONE [Suspect]
     Indication: POLYCYSTIC OVARIES
     Route: 048
     Dates: start: 1988
  6. ALDACTONE [Suspect]
     Indication: RECURRING SKIN BOILS
  7. ALDACTONE [Suspect]
     Indication: VIRILISM
  8. ALDACTONE [Suspect]
     Indication: BLOOD TESTOSTERONE INCREASED
  9. LASIX [Concomitant]
     Indication: HYPERTENSION
     Route: 065
     Dates: start: 2003
  10. LISINOPRIL [Concomitant]
     Indication: HYPERTENSION
     Route: 065
     Dates: start: 2003
  11. LEVOTHYROXINE [Concomitant]
     Indication: HYPOTHYROIDISM
     Route: 065
  12. ADVAIR [Concomitant]
     Indication: CHRONIC OBSTRUCTIVE PULMONARY DISEASE
     Route: 065
     Dates: start: 2003
  13. ADVAIR [Concomitant]
     Indication: ASTHMA
  14. VENTOLIN HFA [Concomitant]
     Indication: CHRONIC OBSTRUCTIVE PULMONARY DISEASE
     Route: 065
     Dates: start: 2003
  15. VENTOLIN HFA [Concomitant]
     Indication: ASTHMA
  16. PRAVASTATIN [Concomitant]
     Indication: BLOOD CHOLESTEROL INCREASED
     Route: 065
     Dates: start: 2003

REACTIONS (16)
  - Pneumonia [Recovered/Resolved]
  - Dyspnoea [Recovered/Resolved]
  - Wrist fracture [Recovered/Resolved]
  - Fall [None]
  - Off label use [None]
  - Type 2 diabetes mellitus [None]
  - Furuncle [Recovered/Resolved]
  - Infection [Recovered/Resolved]
  - Hypertension [Recovered/Resolved]
  - Scar [Recovered/Resolved]
  - Chronic obstructive pulmonary disease [Recovered/Resolved]
  - Carpal tunnel syndrome [Recovered/Resolved]
  - Osteoporosis [Recovered/Resolved]
  - Osteopenia [Recovered/Resolved]
  - Blood cholesterol increased [Recovered/Resolved]
  - Malaise [Recovered/Resolved]
